FAERS Safety Report 16173493 (Version 1)
Quarter: 2019Q2

REPORT INFORMATION
  Report Type: Spontaneous
  Country: US (occurrence: US)
  Receive Date: 20190408
  Receipt Date: 20190408
  Transmission Date: 20190711
  Serious: No
  Sender: FDA-Public Use
  Company Number: None

PATIENT
  Sex: Female

DRUGS (2)
  1. LATANOPROST .005% [Suspect]
     Active Substance: LATANOPROST
  2. TRAVATAN [Suspect]
     Active Substance: TRAVOPROST

REACTIONS (1)
  - Drug ineffective [None]
